FAERS Safety Report 9551669 (Version 1)
Quarter: 2013Q3

REPORT INFORMATION
  Report Type: Spontaneous
  Country: US (occurrence: US)
  Receive Date: 20130925
  Receipt Date: 20130925
  Transmission Date: 20140515
  Serious: No
  Sender: FDA-Public Use
  Company Number: US-MYLANLABS-2013S1011954

PATIENT
  Sex: Female
  Weight: 70.31 kg

DRUGS (7)
  1. SPIRONOLACTONE TABLETS, USP [Suspect]
     Indication: OEDEMA
     Route: 048
     Dates: start: 2011, end: 201305
  2. SPIRONOLACTONE TABLETS, USP [Suspect]
     Indication: OEDEMA
     Route: 048
     Dates: start: 201305
  3. ATACAND [Concomitant]
     Route: 048
  4. CLONIDINE [Concomitant]
     Route: 048
  5. CARDIZEM [Concomitant]
     Route: 048
  6. ISOSORBIDE [Concomitant]
     Route: 048
  7. XANAX [Concomitant]
     Route: 048

REACTIONS (1)
  - Dry eye [Not Recovered/Not Resolved]
